FAERS Safety Report 20414350 (Version 3)
Quarter: 2022Q3

REPORT INFORMATION
  Report Type: Report from Study
  Country: CA (occurrence: CA)
  Receive Date: 20220202
  Receipt Date: 20220728
  Transmission Date: 20221027
  Serious: Yes (Hospitalization, Other)
  Sender: FDA-Public Use
  Company Number: CA-JNJFOC-20210900797

PATIENT
  Age: 38 Year
  Sex: Female
  Weight: 96 kg

DRUGS (2)
  1. REMICADE [Suspect]
     Active Substance: INFLIXIMAB
     Indication: Crohn^s disease
     Dosage: BATCH NUMBER - MAM75013, ADDITIONAL EXPIRY: 01-APR-2024, 01-AUG-2024, 01-DEC-2024.
     Route: 041
  2. REMICADE [Suspect]
     Active Substance: INFLIXIMAB
     Indication: Ankylosing spondylitis

REACTIONS (5)
  - Exposure during pregnancy [Recovered/Resolved]
  - Caesarean section [Unknown]
  - COVID-19 [Not Recovered/Not Resolved]
  - In vitro fertilisation [Unknown]
  - Off label use [Unknown]

NARRATIVE: CASE EVENT DATE: 20210601
